FAERS Safety Report 15433013 (Version 1)
Quarter: 2018Q3

REPORT INFORMATION
  Report Type: Spontaneous
  Country: US (occurrence: US)
  Receive Date: 20180927
  Receipt Date: 20180927
  Transmission Date: 20181010
  Serious: No
  Sender: FDA-Public Use
  Company Number: US-NOVEN PHARMACEUTICALS, INC.-US2017001076

PATIENT

DRUGS (5)
  1. COMBIPATCH [Suspect]
     Active Substance: ESTRADIOL\NORETHINDRONE ACETATE
     Indication: HORMONE REPLACEMENT THERAPY
     Dosage: 50/140 MG, UNKNOWN
     Route: 062
  2. COMBIPATCH [Suspect]
     Active Substance: ESTRADIOL\NORETHINDRONE ACETATE
     Dosage: 50/250 MG, UNK
     Route: 062
     Dates: end: 201702
  3. COMBIPATCH [Suspect]
     Active Substance: ESTRADIOL\NORETHINDRONE ACETATE
     Dosage: 50/140 MG, UNK
     Route: 062
     Dates: start: 201702
  4. COMBIPATCH [Suspect]
     Active Substance: ESTRADIOL\NORETHINDRONE ACETATE
     Dosage: CUTTING THE PATCHES
     Route: 062
     Dates: end: 201709
  5. COMBIPATCH [Suspect]
     Active Substance: ESTRADIOL\NORETHINDRONE ACETATE
     Dosage: APPLIED 50/250 MG PATCH BY CUTTING, UNK
     Route: 062
     Dates: start: 2017

REACTIONS (10)
  - Wrong technique in product usage process [Recovered/Resolved]
  - Acne [Recovered/Resolved]
  - Application site dermatitis [Recovered/Resolved]
  - Therapy cessation [Not Recovered/Not Resolved]
  - Hypersensitivity [Recovered/Resolved]
  - Product quality issue [Recovered/Resolved]
  - Application site scar [Not Recovered/Not Resolved]
  - Drug intolerance [Recovered/Resolved]
  - Drug dose omission [Recovered/Resolved]
  - Application site discolouration [Not Recovered/Not Resolved]

NARRATIVE: CASE EVENT DATE: 2017
